FAERS Safety Report 13317990 (Version 2)
Quarter: 2017Q2

REPORT INFORMATION
  Report Type: Spontaneous
  Country: US (occurrence: US)
  Receive Date: 20170310
  Receipt Date: 20170411
  Transmission Date: 20170830
  Serious: No
  Sender: FDA-Public Use
  Company Number: US-PFIZER INC-2017103748

PATIENT
  Age: 69 Year
  Sex: Female

DRUGS (2)
  1. OMNICEF [Suspect]
     Active Substance: CEFDINIR
     Dosage: UNK
  2. LYRICA [Suspect]
     Active Substance: PREGABALIN
     Dosage: UNK

REACTIONS (3)
  - Drug hypersensitivity [Unknown]
  - Vision blurred [Unknown]
  - Dizziness [Unknown]
